FAERS Safety Report 8994750 (Version 1)
Quarter: 2012Q4

REPORT INFORMATION
  Report Type: Spontaneous
  Country: US (occurrence: None)
  Receive Date: 20121228
  Receipt Date: 20121228
  Transmission Date: 20130627
  Serious: Yes (Hospitalization)
  Sender: FDA-Public Use
  Company Number: None

PATIENT
  Age: 54 Year
  Sex: Male
  Weight: 104.5 kg

DRUGS (11)
  1. LOSARTAN [Suspect]
     Indication: HYPERTENSION
     Route: 048
     Dates: start: 201203, end: 20120525
  2. CYCLOSPORINE [Concomitant]
  3. ESOMEPRAZOLE [Concomitant]
  4. MULTIVITAMIN [Concomitant]
  5. MYCOPHENOLATE [Concomitant]
  6. RIBAVIRIN [Concomitant]
  7. TELAPREVIR [Concomitant]
  8. PEG-IFN 2ALPHA [Concomitant]
  9. TAMSULOSIN [Concomitant]
  10. ALLOPURINOL [Concomitant]
  11. PROMETHAZINE [Concomitant]

REACTIONS (1)
  - Unevaluable event [None]
